FAERS Safety Report 8926377 (Version 1)
Quarter: 2012Q4

REPORT INFORMATION
  Report Type: 
  Country: US (occurrence: US)
  Receive Date: 20121126
  Receipt Date: 20121126
  Transmission Date: 20130627
  Serious: Yes (Other)
  Sender: FDA-Public Use
  Company Number: PHEH2012US022880

PATIENT
  Age: 57 Year
  Sex: Female

DRUGS (2)
  1. GILENYA [Suspect]
  2. AVONEX [Suspect]
     Dosage: 30 ug, QW
     Route: 030
     Dates: start: 19970601, end: 20110430

REACTIONS (4)
  - Breast cancer [Unknown]
  - Asthma [Unknown]
  - Influenza like illness [Unknown]
  - Alopecia [Unknown]
